FAERS Safety Report 12074368 (Version 1)
Quarter: 2016Q1

REPORT INFORMATION
  Report Type: Spontaneous
  Country: US (occurrence: US)
  Receive Date: 20160212
  Receipt Date: 20160212
  Transmission Date: 20160526
  Serious: Yes (Death)
  Sender: FDA-Public Use
  Company Number: US-PERRIGO-16US001368

PATIENT
  Age: 51 Year
  Sex: Male

DRUGS (3)
  1. METHAMPHETAMINE [Suspect]
     Active Substance: METHAMPHETAMINE
     Indication: DRUG ABUSE
     Dosage: UNK
     Route: 065
  2. HEROIN [Suspect]
     Active Substance: DIACETYLMORPHINE
     Indication: DRUG ABUSE
     Dosage: UNK
     Route: 065
  3. ACETAMINOPHEN. [Suspect]
     Active Substance: ACETAMINOPHEN
     Indication: DRUG ABUSE
     Dosage: UNK
     Route: 065

REACTIONS (1)
  - Death [Fatal]
